FAERS Safety Report 19250766 (Version 1)
Quarter: 2021Q2

REPORT INFORMATION
  Report Type: Report from Study
  Country: ES (occurrence: ES)
  Receive Date: 20210512
  Receipt Date: 20210512
  Transmission Date: 20210717
  Serious: Yes (Hospitalization)
  Sender: FDA-Public Use
  Company Number: ES-PFIZER INC-2021491123

PATIENT
  Age: 71 Year
  Sex: Female

DRUGS (3)
  1. CLOMETIAZOLE [Concomitant]
     Active Substance: CLOMETHIAZOLE
     Indication: ANXIETY
     Dosage: UNK
     Route: 048
     Dates: start: 20180613
  2. BISOPROLOL [Concomitant]
     Active Substance: BISOPROLOL
     Indication: HYPERTENSION
     Dosage: 10 MG, 1X/DAY
     Route: 048
     Dates: start: 20150616, end: 20191213
  3. DESVENLAFAXINE SUCCINATE MONOHYDRATE [Suspect]
     Active Substance: DESVENLAFAXINE SUCCINATE
     Indication: DEPRESSION
     Dosage: 150 MG, 1X/DAY
     Route: 048
     Dates: start: 20191107, end: 20191227

REACTIONS (1)
  - Postural orthostatic tachycardia syndrome [Recovered/Resolved]

NARRATIVE: CASE EVENT DATE: 20191122
